FAERS Safety Report 8077737-9 (Version None)
Quarter: 2012Q1

REPORT INFORMATION
  Report Type: 
  Country: None (occurrence: None)
  Receive Date: 20120127
  Receipt Date: 20120123
  Transmission Date: 20120608
  Serious: Yes (Life-Threatening, Hospitalization, Other)
  Sender: FDA-Public Use
  Company Number: JP-ASTRAZENECA-2011SE69948

PATIENT
  Age: 83 Year
  Sex: Female
  Weight: 40 kg

DRUGS (21)
  1. SAWATENE [Concomitant]
     Indication: PNEUMONIA
     Route: 048
     Dates: start: 20111202, end: 20111213
  2. OMEPRAZOLE [Concomitant]
     Route: 048
     Dates: start: 20111001
  3. VIBRAMYCIN [Concomitant]
     Indication: SUBCUTANEOUS ABSCESS
     Route: 048
     Dates: start: 20111018, end: 20111028
  4. FULRUBAN [Concomitant]
     Indication: PAIN
     Dosage: 80 MG, NUMBER OF SEPARATE DOSAGES UNKNOWN
     Route: 065
     Dates: start: 20080404, end: 20120106
  5. IRESSA [Suspect]
     Indication: LUNG ADENOCARCINOMA
     Route: 048
     Dates: start: 20110811, end: 20110906
  6. DEPAS [Concomitant]
     Indication: INSOMNIA
     Route: 048
     Dates: start: 20051111
  7. CODEINE PHOSPHATE HYDRATE [Concomitant]
     Indication: BRONCHITIS CHRONIC
     Route: 048
     Dates: start: 20071124
  8. LANIRAPID [Concomitant]
     Indication: CARDIAC FAILURE CHRONIC
     Route: 048
     Dates: start: 20110301
  9. OMEPRAZOLE [Concomitant]
     Indication: GASTROOESOPHAGEAL REFLUX DISEASE
     Route: 048
     Dates: start: 20110610, end: 20110809
  10. TAIPEMIN [Concomitant]
     Indication: DIARRHOEA
     Route: 048
     Dates: start: 20110906, end: 20110914
  11. TORSEMIDE [Concomitant]
     Indication: CARDIAC FAILURE CHRONIC
     Route: 048
     Dates: start: 20110816
  12. LOCOID [Concomitant]
     Indication: DERMATITIS ACNEIFORM
     Dosage: DOSE UNKNOWN, AS REQUIRED, TWO TIMES A DAY
     Route: 003
     Dates: start: 20111007
  13. HIRUDOID [Concomitant]
     Indication: DRY SKIN
     Dosage: DOSE UNKNOWN, AS REQUIRED, TWO TIMES A DAY
     Route: 003
     Dates: start: 20111015
  14. AMLODIPINE [Concomitant]
     Indication: HYPERTENSION
     Route: 048
     Dates: start: 20051111
  15. FAMOTIDINE [Concomitant]
     Indication: GASTROOESOPHAGEAL REFLUX DISEASE
     Route: 048
     Dates: start: 20110902, end: 20110929
  16. MEIACT [Concomitant]
     Indication: PNEUMONIA
     Route: 048
     Dates: start: 20111202, end: 20111213
  17. MOHRUS TAPE [Concomitant]
     Indication: PAIN
     Dosage: 40 MG, NUMBER OF SEPARATE DOSAGES UNKNOWN
     Route: 062
     Dates: start: 20080404, end: 20120106
  18. IRESSA [Suspect]
     Route: 048
     Dates: start: 20110921
  19. SELBEX [Concomitant]
     Indication: GASTRIC ULCER
     Route: 048
     Dates: start: 20110905
  20. DIOVAN [Concomitant]
     Indication: HYPERTENSION
     Route: 048
     Dates: start: 20051118
  21. GENTAMICIN SULFATE [Concomitant]
     Indication: SUBCUTANEOUS ABSCESS
     Dosage: DOSE UNKNOWN, AS REQUIRED, TWO TIMES A DAY
     Route: 003
     Dates: start: 20111014

REACTIONS (7)
  - FACE OEDEMA [None]
  - GASTRIC ULCER HAEMORRHAGE [None]
  - OEDEMA PERIPHERAL [None]
  - DERMATITIS ACNEIFORM [None]
  - ONYCHOMADESIS [None]
  - SKIN ULCER [None]
  - DIARRHOEA [None]
